FAERS Safety Report 9350955 (Version 2)
Quarter: 2013Q3

REPORT INFORMATION
  Report Type: Report from Study
  Country: US (occurrence: US)
  Receive Date: 20130617
  Receipt Date: 20130708
  Transmission Date: 20140515
  Serious: Yes (Hospitalization, Other)
  Sender: FDA-Public Use
  Company Number: US-JNJFOC-20130606818

PATIENT
  Age: 50 Year
  Sex: Female

DRUGS (9)
  1. REMICADE [Suspect]
     Indication: CROHN^S DISEASE
     Route: 042
     Dates: start: 20130404, end: 201304
  2. REMICADE [Suspect]
     Indication: CROHN^S DISEASE
     Route: 042
     Dates: start: 199904
  3. ASACOL [Concomitant]
     Indication: CROHN^S DISEASE
     Route: 065
  4. METOPROLOL [Concomitant]
     Indication: HYPERTENSION
     Route: 065
  5. IMITREX [Concomitant]
     Indication: MIGRAINE
     Route: 065
  6. PHENERGAN [Concomitant]
     Indication: MIGRAINE
     Route: 065
  7. LORTAB [Concomitant]
     Indication: PAIN
     Route: 065
  8. CALCIUM [Concomitant]
     Route: 065
  9. MULTIVITAMINS [Concomitant]
     Route: 065

REACTIONS (5)
  - Crohn^s disease [Unknown]
  - Abdominal abscess [Unknown]
  - Pyrexia [Recovered/Resolved]
  - Hypersensitivity [Recovered/Resolved]
  - Influenza like illness [Recovered/Resolved]
